FAERS Safety Report 4746459-1 (Version None)
Quarter: 2005Q3

REPORT INFORMATION
  Report Type: 
  Country: None (occurrence: None)
  Receive Date: 20050817
  Receipt Date: 20050805
  Transmission Date: 20060218
  Serious: Yes (Hospitalization)
  Sender: FDA-Public Use
  Company Number: CH-AMGEN-UK145491

PATIENT
  Age: 31 Year
  Sex: Female

DRUGS (9)
  1. NEUPOGEN [Suspect]
     Indication: AGRANULOCYTOSIS
     Route: 058
     Dates: start: 20050301
  2. ALEMTUZUMAB [Suspect]
     Route: 058
     Dates: start: 20050201, end: 20050201
  3. IMIPENEM [Concomitant]
     Dates: start: 20050501
  4. VANCOMYCIN [Concomitant]
     Dates: start: 20050501
  5. METHYLPREDNISOLONE [Concomitant]
     Dates: start: 20050501
  6. PREDNISONE [Concomitant]
     Dates: start: 20050501
  7. MYCOPHENOLATE MOFETIL [Concomitant]
     Dates: start: 20050501
  8. CIPROFLOXACIN [Concomitant]
     Dates: start: 20050301, end: 20050418
  9. METRONIDAZOLE [Concomitant]
     Dates: start: 20050301, end: 20050418

REACTIONS (6)
  - BONE MARROW DEPRESSION [None]
  - LUNG TRANSPLANT REJECTION [None]
  - METRORRHAGIA [None]
  - PANCYTOPENIA [None]
  - PNEUMONIA ASPIRATION [None]
  - PYREXIA [None]
